FAERS Safety Report 14455939 (Version 1)
Quarter: 2018Q1

REPORT INFORMATION
  Report Type: Spontaneous
  Country: AU (occurrence: AU)
  Receive Date: 20180130
  Receipt Date: 20180130
  Transmission Date: 20180509
  Serious: Yes (Other)
  Sender: FDA-Public Use
  Company Number: AU-INGENUS PHARMACEUTICALS, LLC-INF201801-000094

PATIENT
  Age: 65 Year
  Sex: Male

DRUGS (9)
  1. LEVETIRACETAM. [Concomitant]
     Active Substance: LEVETIRACETAM
  2. ETOPOSIDE. [Suspect]
     Active Substance: ETOPOSIDE
  3. LACOSAMIDE. [Concomitant]
     Active Substance: LACOSAMIDE
  4. SODIUM VALPROATE [Concomitant]
     Active Substance: VALPROATE SODIUM
  5. METOPROLOL. [Concomitant]
     Active Substance: METOPROLOL
     Indication: SINUS NODE DYSFUNCTION
  6. APIXABAN [Concomitant]
     Active Substance: APIXABAN
     Indication: SINUS NODE DYSFUNCTION
  7. SODIUM VALPROATE [Concomitant]
     Active Substance: VALPROATE SODIUM
     Indication: GENERALISED TONIC-CLONIC SEIZURE
  8. CARBOPLATIN. [Suspect]
     Active Substance: CARBOPLATIN
  9. CARBAMAZEPINE. [Concomitant]
     Active Substance: CARBAMAZEPINE
     Indication: GENERALISED TONIC-CLONIC SEIZURE

REACTIONS (4)
  - Staphylococcal sepsis [Recovered/Resolved]
  - Febrile neutropenia [Recovered/Resolved]
  - Therapeutic response unexpected [Unknown]
  - Product use in unapproved indication [Unknown]
